FAERS Safety Report 5581305-8 (Version None)
Quarter: 2008Q1

REPORT INFORMATION
  Report Type: 
  Country: None (occurrence: None)
  Receive Date: 20080104
  Receipt Date: 20071213
  Transmission Date: 20080703
  Serious: No
  Sender: FDA-Public Use
  Company Number: US-BAYER-200716599NA

PATIENT
  Age: 36 Year
  Sex: Female
  Weight: 61 kg

DRUGS (2)
  1. YAZ [Suspect]
     Indication: CONTRACEPTION
     Route: 048
     Dates: start: 20061012, end: 20071101
  2. CYMBALTA [Concomitant]
     Indication: DEPRESSION

REACTIONS (2)
  - HEADACHE [None]
  - RHINITIS [None]
